FAERS Safety Report 6069550-9 (Version None)
Quarter: 2009Q1

REPORT INFORMATION
  Report Type: 
  Country: None (occurrence: None)
  Receive Date: 20090206
  Receipt Date: 20090130
  Transmission Date: 20090719
  Serious: Yes (Hospitalization, Other)
  Sender: FDA-Public Use
  Company Number: BR-ABBOTT-09P-020-0501360-00

PATIENT
  Sex: Male

DRUGS (1)
  1. HUMIRA [Suspect]
     Indication: CROHN'S DISEASE
     Route: 058
     Dates: start: 20080225, end: 20080801

REACTIONS (6)
  - ABDOMINAL PAIN [None]
  - COUGH [None]
  - DISCOMFORT [None]
  - DRUG INEFFECTIVE [None]
  - FISTULA [None]
  - LUNG NEOPLASM [None]
